FAERS Safety Report 21359643 (Version 1)
Quarter: 2022Q3

REPORT INFORMATION
  Report Type: Spontaneous
  Country: US (occurrence: US)
  Receive Date: 20220921
  Receipt Date: 20220921
  Transmission Date: 20221027
  Serious: No
  Sender: FDA-Public Use
  Company Number: US-BEH-2022149684

PATIENT
  Sex: Female

DRUGS (1)
  1. HIZENTRA [Suspect]
     Active Substance: HUMAN IMMUNOGLOBULIN G
     Route: 065

REACTIONS (8)
  - Arthralgia [Recovered/Resolved]
  - Wrong technique in product usage process [Unknown]
  - Paraesthesia oral [Recovered/Resolved]
  - Wrong technique in product usage process [Not Recovered/Not Resolved]
  - Vascular injury [Unknown]
  - Wrong technique in product usage process [Recovered/Resolved]
  - Nausea [Not Recovered/Not Resolved]
  - Wrong technique in product usage process [Recovered/Resolved]

NARRATIVE: CASE EVENT DATE: 20220909
